FAERS Safety Report 5455879-1 (Version None)
Quarter: 2007Q3

REPORT INFORMATION
  Report Type: 
  Country: None (occurrence: None)
  Receive Date: 20070918
  Receipt Date: 20070228
  Transmission Date: 20080115
  Serious: Yes (Hospitalization)
  Sender: FDA-Public Use
  Company Number: US-ASTRAZENECA-2006UW24125

PATIENT
  Age: 20994 Day
  Sex: Female
  Weight: 77.3 kg

DRUGS (12)
  1. SEROQUEL [Suspect]
     Indication: DEPRESSION
     Dosage: 200 MG-300 MG
     Route: 048
     Dates: end: 20050101
  2. SEROQUEL [Suspect]
     Indication: BIPOLAR DISORDER
     Dosage: 200 MG-300 MG
     Route: 048
     Dates: end: 20050101
  3. SEROQUEL [Suspect]
     Indication: SLEEP DISORDER
     Dosage: 200 MG-300 MG
     Route: 048
     Dates: end: 20050101
  4. SEROQUEL [Suspect]
     Dosage: 100 MG-200 MG
     Route: 048
     Dates: start: 20050101
  5. SEROQUEL [Suspect]
     Dosage: 100 MG-200 MG
     Route: 048
     Dates: start: 20050101
  6. SEROQUEL [Suspect]
     Dosage: 100 MG-200 MG
     Route: 048
     Dates: start: 20050101
  7. ABILIFY [Suspect]
     Dates: start: 20030201, end: 20030401
  8. LITHIUM [Suspect]
     Dates: start: 20060101
  9. RISPERDAL [Suspect]
     Dosage: 2 MG-3 MG
     Dates: start: 20051101, end: 20060301
  10. EFFEXOR [Suspect]
     Dates: start: 20060101
  11. GEODON [Suspect]
     Dosage: 20 MG - 80 MG
     Dates: start: 20010101, end: 20020101
  12. ZYPREXA [Concomitant]

REACTIONS (4)
  - BLOOD CHOLESTEROL INCREASED [None]
  - DEPRESSION [None]
  - DIABETES MELLITUS [None]
  - HYPERGLYCAEMIA [None]
